FAERS Safety Report 6372871-3 (Version None)
Quarter: 2009Q3

REPORT INFORMATION
  Report Type: 
  Country: None (occurrence: None)
  Receive Date: 20090924
  Receipt Date: 20081202
  Transmission Date: 20100115
  Serious: No
  Sender: FDA-Public Use
  Company Number: US-ASTRAZENECA-2008UW26883

PATIENT
  Age: 56 Year
  Sex: Male
  Weight: 140.6 kg

DRUGS (5)
  1. SEROQUEL [Suspect]
     Route: 048
  2. BP MEDICATION [Concomitant]
  3. CHOLESTEROL MEDICATION [Concomitant]
  4. ANTI DIABETES MEDICATION. [Concomitant]
  5. KIDNEY MEDICATION [Concomitant]

REACTIONS (2)
  - ABDOMINAL DISCOMFORT [None]
  - WEIGHT INCREASED [None]
